FAERS Safety Report 23089209 (Version 1)
Quarter: 2023Q4

REPORT INFORMATION
  Report Type: Spontaneous
  Country: GB (occurrence: GB)
  Receive Date: 20231020
  Receipt Date: 20231020
  Transmission Date: 20240110
  Serious: Yes (Disabling)
  Sender: FDA-Public Use
  Company Number: None

PATIENT
  Age: 68 Year
  Sex: Female
  Weight: 89 kg

DRUGS (14)
  1. BACLOFEN [Suspect]
     Active Substance: BACLOFEN
     Indication: Product used for unknown indication
     Dosage: 20 MILLIGRAM, TID
     Route: 048
     Dates: start: 20230314
  2. CLARITHROMYCIN [Concomitant]
     Active Substance: CLARITHROMYCIN
     Dosage: 1 DOSAGE FORM, BID
     Route: 065
     Dates: start: 20231008
  3. DIAZEPAM [Concomitant]
     Active Substance: DIAZEPAM
     Dosage: 1 DOSAGE FORM, QD (AS PER YOUR PSYCHIATRIST)
     Route: 065
     Dates: start: 20160330
  4. DICLOFENAC DIETHYLAMINE [Concomitant]
     Active Substance: DICLOFENAC DIETHYLAMINE
     Dosage: 1 DOSAGE FORM, TID (APPLY)
     Route: 065
     Dates: start: 20150623
  5. DOCUSATE SODIUM [Concomitant]
     Active Substance: DOCUSATE SODIUM
     Dosage: 200 MILLIGRAM, QD ((10ML) IN THE MORNING AND 300MG (15ML))
     Route: 065
     Dates: start: 20230320
  6. DULOXETINE [Concomitant]
     Active Substance: DULOXETINE
     Dosage: 1 DOSAGE FORM, QD (1 EVERY DAY)
     Route: 065
     Dates: start: 20170504
  7. ESTRADIOL [Concomitant]
     Active Substance: ESTRADIOL
     Dosage: UNK (AS PER GYNAE)
     Route: 065
     Dates: start: 20200407
  8. ESTRADIOL [Concomitant]
     Active Substance: ESTRADIOL
     Dosage: 1 DOSAGE FORM, Q2W (APPLY)
     Route: 065
     Dates: start: 20220615
  9. Hydromol [Concomitant]
     Dosage: UNK UNK, QD (~APPLY IN THE BATH OR SHOWER)
     Route: 065
     Dates: start: 20180905
  10. SUMATRIPTAN SUCCINATE [Concomitant]
     Active Substance: SUMATRIPTAN SUCCINATE
     Dosage: 1 DOSAGE FORM (USE ONE TWICE A DAY AS DIRECTED)
     Route: 065
     Dates: start: 20211122
  11. MOVICOL [Concomitant]
     Active Substance: POLYETHYLENE GLYCOL 3350\POTASSIUM CHLORIDE\SODIUM BICARBONATE\SODIUM CHLORIDE
     Dosage: UNK (ONE - TWO SACHETS DAILY)
     Route: 065
     Dates: start: 20221107
  12. PREGABALIN [Concomitant]
     Active Substance: PREGABALIN
     Dosage: 1 DOSAGE FORM, QD (AT NIGHT, TITRATE UP WEEKLY AS DIR)
     Route: 065
     Dates: start: 20231012
  13. LITHIUM [Concomitant]
     Active Substance: LITHIUM
     Dosage: 1 DOSAGE FORM, QD (AS DIRECTED)
     Route: 065
     Dates: start: 20160831
  14. PROGESTERONE [Concomitant]
     Active Substance: PROGESTERONE
     Dosage: 1 DOSAGE FORM, QD (AT BEDTIME DAYS 1-25 OF HRT CYCLE)
     Route: 065
     Dates: start: 20221005

REACTIONS (5)
  - Mental status changes [Recovering/Resolving]
  - Butterfly rash [Recovering/Resolving]
  - Cough [Recovering/Resolving]
  - Blister [Recovering/Resolving]
  - Withdrawal syndrome [Unknown]
